FAERS Safety Report 12163664 (Version 1)
Quarter: 2016Q1

REPORT INFORMATION
  Report Type: Spontaneous
  Country: CH (occurrence: CH)
  Receive Date: 20160309
  Receipt Date: 20160309
  Transmission Date: 20160526
  Serious: Yes (Other)
  Sender: FDA-Public Use
  Company Number: CH-ASTRAZENECA-2016SE22471

PATIENT
  Age: 8430 Day
  Sex: Male

DRUGS (13)
  1. SINTENYL [Concomitant]
     Active Substance: FENTANYL CITRATE
     Dosage: VIA ELECTRIC SYRINGE PUMP 24,387 UG SINCE 06-FEB-2016
     Route: 040
     Dates: start: 20160206, end: 20160214
  2. CLEXANE [Suspect]
     Active Substance: ENOXAPARIN SODIUM
     Dosage: CUMULATIVE DOSE: 320 MG
     Route: 058
     Dates: start: 20160208
  3. CARDENE [Suspect]
     Active Substance: NICARDIPINE HYDROCHLORIDE
     Dosage: VIA ELECTRIC SYRINGE PUMP / 12.42 MG ON 09-FEB-2016 AND 10-FEB-2016
     Route: 040
  4. ZYPREXA [Concomitant]
     Active Substance: OLANZAPINE
     Dosage: 10 MG WITH UNKNOWN FREQUENCY, CUMULATIVE DOSE: 130 MG
     Route: 048
  5. DAFALGAN [Suspect]
     Active Substance: ACETAMINOPHEN
     Dosage: 1 G WITH UNKNOWN FREQUENCY, CUMULATIVE DOSE: 36 G
     Route: 048
     Dates: start: 20160206
  6. BENERVA [Concomitant]
     Active Substance: THIAMINE
     Dosage: CUMULATIVE DOSE: 3000 MG
     Route: 048
     Dates: start: 20160210, end: 20160212
  7. PROPOFOL. [Suspect]
     Active Substance: PROPOFOL
     Dosage: 26,907.26 FROM 06-FEB-2016
     Route: 040
     Dates: start: 20160206, end: 20160214
  8. HALDOL [Suspect]
     Active Substance: HALOPERIDOL
     Route: 040
     Dates: start: 20160207, end: 20160207
  9. HEPARIN [Suspect]
     Active Substance: HEPARIN SODIUM
     Dosage: VIA ELECTRIC SYRINGE PUMP / 13,659.17 IU ON 07-FEB-2016 AND 08-FEB-2016
     Route: 040
     Dates: start: 20160207, end: 20160208
  10. ANXIOLIT [Concomitant]
     Active Substance: OXAZEPAM
     Dosage: CUMULATIVE DOSE: 2340 MG
     Route: 048
     Dates: start: 20160207
  11. NEXIUM [Suspect]
     Active Substance: ESOMEPRAZOLE MAGNESIUM
     Dosage: 40 MG WITH UNKNOWN FREQUENCY, CUMULATIVE DOSE: 280 MG
     Route: 048
     Dates: start: 20160206, end: 20160211
  12. TRANDATE [Suspect]
     Active Substance: LABETALOL HYDROCHLORIDE
     Dosage: VIA ELECTRIC SYRINGE PUMP / 94.67 MG ON 08-FEB-2016 AND 09-FEB-2016
     Route: 040
     Dates: start: 20160208, end: 20160209
  13. DEXMEDETOMIDINE. [Concomitant]
     Active Substance: DEXMEDETOMIDINE
     Dosage: CUMULATIVE DOSE: 2299 MG
     Route: 040
     Dates: start: 20160207, end: 20160210

REACTIONS (1)
  - Mixed liver injury [Recovering/Resolving]

NARRATIVE: CASE EVENT DATE: 20160210
